FAERS Safety Report 21355229 (Version 4)
Quarter: 2022Q4

REPORT INFORMATION
  Report Type: Spontaneous
  Country: FR (occurrence: FR)
  Receive Date: 20220920
  Receipt Date: 20221004
  Transmission Date: 20230113
  Serious: Yes (Death, Congenital Anomaly, Other)
  Sender: FDA-Public Use
  Company Number: None

PATIENT
  Sex: Female
  Weight: 2.27 kg

DRUGS (17)
  1. RAMIPRIL [Suspect]
     Active Substance: RAMIPRIL
     Indication: Foetal exposure during pregnancy
     Route: 064
     Dates: end: 20150220
  2. ASPIRIN DL-LYSINE [Suspect]
     Active Substance: ASPIRIN DL-LYSINE
     Indication: Foetal exposure during pregnancy
     Dosage: 100 MG, QD
     Route: 064
     Dates: end: 20150818
  3. SODIUM BICARBONATE [Suspect]
     Active Substance: SODIUM BICARBONATE
     Indication: Foetal exposure during pregnancy
     Dosage: MATERNAL DOSE: 2 G, QD (1 G, BID)
     Route: 064
     Dates: start: 20150220, end: 20150818
  4. IRBESARTAN [Suspect]
     Active Substance: IRBESARTAN
     Indication: Foetal exposure during pregnancy
     Dosage: UNK
     Route: 064
     Dates: end: 20150220
  5. PRIMPERAN [Suspect]
     Active Substance: METOCLOPRAMIDE HYDROCHLORIDE
     Indication: Foetal exposure during pregnancy
     Dosage: 10 MG, 3X/DAY (TID) STRENGTH:30 MG
     Route: 064
     Dates: start: 20150220, end: 20150818
  6. SPIRAMYCIN [Suspect]
     Active Substance: SPIRAMYCIN
     Indication: Foetal exposure during pregnancy
     Dosage: UNK
     Route: 064
     Dates: start: 20150220, end: 20150818
  7. SPIRONOLACTONE [Suspect]
     Active Substance: SPIRONOLACTONE
     Dosage: UNK
     Route: 064
     Dates: end: 20150220
  8. PROZAC [Suspect]
     Active Substance: FLUOXETINE HYDROCHLORIDE
     Indication: Foetal exposure during pregnancy
     Dosage: 20 MG, QD
     Route: 064
     Dates: start: 20150220, end: 20150818
  9. PROBIOTICS NOS [Suspect]
     Active Substance: PROBIOTICS NOS
     Dosage: 20000 IU, QM
     Dates: end: 20150818
  10. ATARAX [Suspect]
     Active Substance: HYDROXYZINE HYDROCHLORIDE
     Indication: Foetal exposure during pregnancy
     Dosage: 25 MG, ONCE DAILY (QD)
     Route: 064
     Dates: start: 20150220, end: 20150818
  11. FERROUS SULFATE [Suspect]
     Active Substance: FERROUS SULFATE
     Indication: Foetal exposure during pregnancy
     Dosage: 2 DF, QD
     Route: 064
     Dates: end: 20150818
  12. CHOLECALCIFEROL [Suspect]
     Active Substance: CHOLECALCIFEROL
     Indication: Foetal exposure during pregnancy
     Dosage: 20000 IU, MONTHLY (QM) 666.6667 IU , FROM: 3RD TRIMESTER OF PREGNANCY
     Route: 064
     Dates: end: 20150818
  13. INSULIN NOS [Suspect]
     Active Substance: INSULIN NOS
     Indication: Foetal exposure during pregnancy
     Dosage: UNK
     Route: 064
     Dates: start: 20150220, end: 20150818
  14. NEORAL [Suspect]
     Active Substance: CYCLOSPORINE
     Indication: Glomerulonephritis membranous
     Dosage: 200 MG, BID
     Route: 064
     Dates: start: 20150220, end: 20150818
  15. NEORAL [Suspect]
     Active Substance: CYCLOSPORINE
     Indication: Foetal exposure during pregnancy
  16. EZETIMIBE\SIMVASTATIN [Suspect]
     Active Substance: EZETIMIBE\SIMVASTATIN
     Indication: Foetal exposure during pregnancy
     Route: 064
     Dates: end: 20150220
  17. ERGOCALCIFEROL [Suspect]
     Active Substance: ERGOCALCIFEROL
     Dosage: 20000 IU
     Dates: start: 20150818

REACTIONS (7)
  - Multiple organ dysfunction syndrome [Fatal]
  - Disseminated intravascular coagulation [Fatal]
  - Congenital musculoskeletal disorder [Not Recovered/Not Resolved]
  - Talipes [Not Recovered/Not Resolved]
  - Dysmorphism [Not Recovered/Not Resolved]
  - Low birth weight baby [Unknown]
  - Maternal exposure during pregnancy [Unknown]

NARRATIVE: CASE EVENT DATE: 20150220
